FAERS Safety Report 12236854 (Version 1)
Quarter: 2016Q2

REPORT INFORMATION
  Report Type: Other
  Country: UA (occurrence: UA)
  Receive Date: 20160405
  Receipt Date: 20160405
  Transmission Date: 20160815
  Serious: Yes (Hospitalization)
  Sender: FDA-Public Use
  Company Number: UA-CIPLA LTD.-2016UA03206

PATIENT

DRUGS (4)
  1. CLARITHROMYCIN. [Suspect]
     Active Substance: CLARITHROMYCIN
     Dosage: UNK
     Route: 065
  2. BISEPTOL [Suspect]
     Active Substance: SULFAMETHOXAZOLE\TRIMETHOPRIM
     Dosage: UNK
     Route: 065
  3. LAMIVUDINE/ZIDOVUDINE [Suspect]
     Active Substance: LAMIVUDINE\ZIDOVUDINE
     Dosage: UNK
     Route: 065
  4. EFAVIRENZ [Suspect]
     Active Substance: EFAVIRENZ
     Indication: ANTIRETROVIRAL THERAPY
     Dosage: 600 MG, QD, 1 T/D
     Route: 048
     Dates: start: 20081206

REACTIONS (5)
  - Disturbance in attention [Recovered/Resolved]
  - Dizziness [Recovered/Resolved]
  - Coordination abnormal [Recovered/Resolved]
  - Memory impairment [Recovered/Resolved]
  - Tremor [Recovered/Resolved]

NARRATIVE: CASE EVENT DATE: 20081208
